FAERS Safety Report 7875450-1 (Version None)
Quarter: 2011Q4

REPORT INFORMATION
  Report Type: 
  Country: None (occurrence: None)
  Receive Date: 20111031
  Receipt Date: 20111021
  Transmission Date: 20120403
  Serious: Yes (Other)
  Sender: FDA-Public Use
  Company Number: PHHY2011BR93805

PATIENT
  Sex: Female

DRUGS (9)
  1. LASIX [Suspect]
     Dosage: UNK UKN, UNK
     Dates: end: 20110829
  2. XALATAN [Concomitant]
     Indication: GLAUCOMA
     Dosage: UNK UKN, UNK
     Dates: start: 20060929
  3. ATENOLOL [Concomitant]
     Indication: HYPERTENSION
     Dosage: UNK UKN, UNK
     Dates: start: 20000929
  4. VARICELL [Concomitant]
     Indication: CARDIOVASCULAR DISORDER
     Dosage: 3 DF, DAILY
     Dates: start: 20110329, end: 20110922
  5. LATANOPROST [Concomitant]
     Indication: GLAUCOMA
     Dosage: 1 DRP, QD
     Dates: start: 20041001
  6. LIPITOR [Concomitant]
     Indication: HYPERTENSION
     Dosage: 1 DF, QD
     Dates: start: 20090127
  7. VARICOCI [Concomitant]
     Indication: CARDIOVASCULAR DISORDER
     Dosage: UNK UKN, UNK
     Dates: start: 20110329, end: 20110829
  8. EXFORGE [Suspect]
     Indication: HYPERTENSION
     Dosage: 1 DF(320/5MG ) IN THE MORNING ONCE
     Dates: start: 20100329
  9. VARICUR [Concomitant]
     Indication: CARDIOVASCULAR DISORDER
     Dosage: UNK UKN, UNK
     Dates: start: 20110929

REACTIONS (6)
  - GAIT DISTURBANCE [None]
  - INTRAOCULAR PRESSURE INCREASED [None]
  - PAIN IN EXTREMITY [None]
  - DYSSTASIA [None]
  - OEDEMA PERIPHERAL [None]
  - BURNING SENSATION [None]
